FAERS Safety Report 9705901 (Version 1)
Quarter: 2013Q4

REPORT INFORMATION
  Report Type: Spontaneous
  Country: US (occurrence: US)
  Receive Date: 20131122
  Receipt Date: 20131122
  Transmission Date: 20140711
  Serious: No
  Sender: FDA-Public Use
  Company Number: US-GALDERMA-US13000443

PATIENT
  Age: 55 Year
  Sex: Female

DRUGS (6)
  1. CLOBEX (CLOBETASOL PROPIONATE) SPRAY, 0.05% [Suspect]
     Indication: PSORIASIS
     Route: 061
     Dates: start: 2011, end: 2011
  2. DEXILANT [Concomitant]
     Indication: IRRITABLE BOWEL SYNDROME
     Dosage: 60MG
     Route: 048
  3. MIRALAX [Concomitant]
     Indication: IRRITABLE BOWEL SYNDROME
  4. ALIGN [Concomitant]
     Indication: IRRITABLE BOWEL SYNDROME
     Route: 048
  5. JOICO SHAMPOO [Concomitant]
     Indication: THERAPEUTIC SKIN CARE TOPICAL
     Route: 061
  6. JOICO CONDITIONER [Concomitant]
     Indication: THERAPEUTIC SKIN CARE TOPICAL
     Route: 061

REACTIONS (2)
  - Drug ineffective [Not Recovered/Not Resolved]
  - Incorrect drug administration duration [Not Recovered/Not Resolved]
